FAERS Safety Report 9585992 (Version 1)
Quarter: 2013Q4

REPORT INFORMATION
  Report Type: Spontaneous
  Country: US (occurrence: None)
  Receive Date: 20131002
  Receipt Date: 20131002
  Transmission Date: 20140711
  Serious: No
  Sender: FDA-Public Use
  Company Number: None

PATIENT
  Age: 85 Day
  Sex: Male

DRUGS (1)
  1. RITUXAN [Suspect]
     Indication: CHEMOTHERAPY

REACTIONS (5)
  - Flushing [None]
  - Rash [None]
  - Urticaria [None]
  - Nausea [None]
  - Abdominal pain [None]
